FAERS Safety Report 9731398 (Version 3)
Quarter: 2014Q3

REPORT INFORMATION
  Report Type: Spontaneous
  Country: US (occurrence: US)
  Receive Date: 20131205
  Receipt Date: 20140923
  Transmission Date: 20150326
  Serious: Yes (Hospitalization, Other)
  Sender: FDA-Public Use
  Company Number: US-ASTRAZENECA-2013SE87825

PATIENT
  Age: 54 Year
  Sex: Female
  Weight: 61.2 kg

DRUGS (16)
  1. SEROQUEL [Suspect]
     Active Substance: QUETIAPINE FUMARATE
     Indication: NERVOUSNESS
     Route: 048
     Dates: start: 2005
  2. SEROQUEL [Suspect]
     Active Substance: QUETIAPINE FUMARATE
     Indication: BIPOLAR I DISORDER
     Route: 048
     Dates: start: 2005
  3. SEROQUEL [Suspect]
     Active Substance: QUETIAPINE FUMARATE
     Indication: BIPOLAR I DISORDER
     Route: 048
     Dates: start: 2005
  4. SEROQUEL [Suspect]
     Active Substance: QUETIAPINE FUMARATE
     Indication: NERVOUSNESS
     Route: 048
     Dates: start: 2006
  5. OTHER MEDICATIONS [Concomitant]
     Active Substance: UNSPECIFIED INGREDIENT
     Indication: BLOOD CHOLESTEROL INCREASED
  6. SEROQUEL [Suspect]
     Active Substance: QUETIAPINE FUMARATE
     Indication: DEPRESSION
     Route: 048
     Dates: start: 2005
  7. LISINOPRIL HCTZ [Suspect]
     Active Substance: HYDROCHLOROTHIAZIDE\LISINOPRIL
     Indication: BLOOD PRESSURE ABNORMAL
     Dosage: 20+12.5 MG, DAILY
     Route: 048
  8. ALBUTEROL SULFATE. [Concomitant]
     Active Substance: ALBUTEROL SULFATE
     Indication: BRONCHITIS
     Route: 055
  9. ATORVASTATIN [Concomitant]
     Active Substance: ATORVASTATIN
     Indication: BLOOD CHOLESTEROL INCREASED
  10. PRAVASTATIN [Concomitant]
     Active Substance: PRAVASTATIN\PRAVASTATIN SODIUM
  11. SEROQUEL [Suspect]
     Active Substance: QUETIAPINE FUMARATE
     Indication: DEPRESSION
     Route: 048
     Dates: start: 2005
  12. SEROQUEL [Suspect]
     Active Substance: QUETIAPINE FUMARATE
     Indication: NERVOUSNESS
     Route: 048
     Dates: start: 2005
  13. SEROQUEL [Suspect]
     Active Substance: QUETIAPINE FUMARATE
     Indication: BIPOLAR I DISORDER
     Route: 048
     Dates: start: 2006
  14. SEROQUEL [Suspect]
     Active Substance: QUETIAPINE FUMARATE
     Indication: DEPRESSION
     Route: 048
     Dates: start: 2006
  15. METOPROLOL (CARACO) [Concomitant]
     Indication: HYPERTENSION
     Route: 048
  16. METOPROLOL (CARACO) [Concomitant]
     Indication: HYPERTENSION
     Route: 048

REACTIONS (13)
  - Muscular weakness [Unknown]
  - Bronchitis [Unknown]
  - Suicidal ideation [Not Recovered/Not Resolved]
  - Bronchitis chronic [Unknown]
  - Blood cholesterol increased [Unknown]
  - Malaise [Unknown]
  - Hypertension [Unknown]
  - Visual impairment [Unknown]
  - Therapeutic response changed [Unknown]
  - Dyspnoea [Unknown]
  - Drug dose omission [Unknown]
  - Insomnia [Unknown]
  - Aphagia [Unknown]
